FAERS Safety Report 21168008 (Version 1)
Quarter: 2022Q3

REPORT INFORMATION
  Report Type: Report from Study
  Country: US (occurrence: US)
  Receive Date: 20220803
  Receipt Date: 20220803
  Transmission Date: 20221026
  Serious: Yes (Hospitalization, Other)
  Sender: FDA-Public Use
  Company Number: US-BRISTOL-MYERS SQUIBB COMPANY-BMS-2015-077457

PATIENT
  Age: 69 Year
  Sex: Male
  Weight: 68.599 kg

DRUGS (4)
  1. DASATINIB [Suspect]
     Active Substance: DASATINIB
     Indication: Pancreatic carcinoma
     Dosage: UNK, QD DAY 1-14
     Route: 048
     Dates: start: 20140310, end: 201512
  2. LEUCOVORIN [Concomitant]
     Active Substance: LEUCOVORIN
     Indication: Pancreatic carcinoma
     Dosage: UNK, Q3WK
     Route: 042
  3. LEUCOVORIN                         /00566701/ [Concomitant]
     Indication: Pancreatic carcinoma
     Dosage: 200 MG/M2, UNK
     Route: 065
  4. 5-FU                               /00098801/ [Concomitant]
     Indication: Pancreatic carcinoma
     Route: 065

REACTIONS (1)
  - Cholangitis [Unknown]

NARRATIVE: CASE EVENT DATE: 20151104
